FAERS Safety Report 18841696 (Version 1)
Quarter: 2021Q1

REPORT INFORMATION
  Report Type: Spontaneous
  Country: DE (occurrence: DE)
  Receive Date: 20210203
  Receipt Date: 20210203
  Transmission Date: 20210419
  Serious: Yes (Hospitalization, Other)
  Sender: FDA-Public Use
  Company Number: DE-ALLERGAN-2104964US

PATIENT
  Sex: Female
  Weight: 67 kg

DRUGS (4)
  1. GABAPENTIN. [Suspect]
     Active Substance: GABAPENTIN
     Indication: PRODUCT USED FOR UNKNOWN INDICATION
     Dosage: 900 [MG/D (300?0?600 MG) ]
     Route: 048
     Dates: start: 20190615, end: 20190716
  2. UTROGEST [Concomitant]
     Active Substance: PROGESTERONE
     Dosage: 200 [MG/D (100?0?100) ]
     Route: 067
     Dates: start: 20190730, end: 20190801
  3. EUTHYROX [Concomitant]
     Active Substance: LEVOTHYROXINE SODIUM
     Dosage: 150 [?G/D (BIS 112 ?G/D) ]
     Route: 048
     Dates: start: 20190615, end: 20190910
  4. ESCITALOPRAM OXALATE ? BP [Suspect]
     Active Substance: ESCITALOPRAM OXALATE
     Indication: TENSION HEADACHE
     Dosage: 5 MG, QD
     Route: 048
     Dates: start: 20190615, end: 20190716

REACTIONS (6)
  - Hydrops foetalis [Unknown]
  - Retroplacental haematoma [Unknown]
  - Haemorrhage in pregnancy [Recovered/Resolved]
  - Pregnancy [Unknown]
  - Product use in unapproved indication [Unknown]
  - Oligohydramnios [Recovered/Resolved]
